FAERS Safety Report 9753850 (Version 2)
Quarter: 2015Q3

REPORT INFORMATION
  Report Type: Spontaneous
  Country: US (occurrence: US)
  Receive Date: 20131213
  Receipt Date: 20150805
  Transmission Date: 20151125
  Serious: No
  Sender: FDA-Public Use
  Company Number: US-GILEAD-2010-0027652

PATIENT
  Age: 76 Year
  Sex: Female
  Weight: 64.41 kg

DRUGS (12)
  1. GABAPENTIN. [Concomitant]
     Active Substance: GABAPENTIN
  2. CELEBREX [Concomitant]
     Active Substance: CELECOXIB
  3. NORVASC [Concomitant]
     Active Substance: AMLODIPINE BESYLATE
  4. PREMARIN [Concomitant]
     Active Substance: ESTROGENS, CONJUGATED
  5. ASPIRIN. [Concomitant]
     Active Substance: ASPIRIN
  6. LETAIRIS [Suspect]
     Active Substance: AMBRISENTAN
     Indication: PULMONARY ARTERIAL HYPERTENSION
     Route: 048
     Dates: start: 20090505
  7. REVATIO [Concomitant]
     Active Substance: SILDENAFIL CITRATE
  8. MULTIVITAMIN [Concomitant]
     Active Substance: VITAMINS
  9. TYLENOL [Concomitant]
     Active Substance: ACETAMINOPHEN
  10. HYDROXYCHLOROQUINE [Concomitant]
     Active Substance: HYDROXYCHLOROQUINE
  11. OMEPRAZOLE. [Concomitant]
     Active Substance: OMEPRAZOLE
  12. CIPRO [Concomitant]
     Active Substance: CIPROFLOXACIN HYDROCHLORIDE

REACTIONS (1)
  - Fatigue [Unknown]
